FAERS Safety Report 4730411-6 (Version None)
Quarter: 2005Q3

REPORT INFORMATION
  Report Type: 
  Country: None (occurrence: None)
  Receive Date: 20050801
  Receipt Date: 20050722
  Transmission Date: 20060218
  Serious: Yes (Hospitalization)
  Sender: FDA-Public Use
  Company Number: US-AMGEN-US143839

PATIENT
  Sex: Male

DRUGS (5)
  1. ARANESP [Suspect]
     Indication: ANAEMIA
     Dates: start: 20040428
  2. UNSPECIFIED THYROID MEDICATION [Concomitant]
  3. LORAZEPAM [Concomitant]
  4. ZYPREXA [Concomitant]
  5. BICITRA [Concomitant]

REACTIONS (4)
  - ASTHENIA [None]
  - BACTERIAL INFECTION [None]
  - HAEMORRHOIDS [None]
  - RECTAL HAEMORRHAGE [None]
